FAERS Safety Report 9579619 (Version 1)
Quarter: 2013Q4

REPORT INFORMATION
  Report Type: Spontaneous
  Country: US (occurrence: US)
  Receive Date: 20131002
  Receipt Date: 20131002
  Transmission Date: 20140711
  Serious: Yes (Other)
  Sender: FDA-Public Use
  Company Number: US-AMGEN-USASP2013068319

PATIENT
  Age: 61 Year
  Sex: Male

DRUGS (1)
  1. ENBREL [Suspect]
     Indication: RHEUMATOID ARTHRITIS
     Dosage: 50 MG, QWK
     Route: 065
     Dates: start: 20130430, end: 20130921

REACTIONS (5)
  - Prostatomegaly [Not Recovered/Not Resolved]
  - Post procedural haematuria [Not Recovered/Not Resolved]
  - Procedural pain [Not Recovered/Not Resolved]
  - Genital discomfort [Not Recovered/Not Resolved]
  - Dysuria [Not Recovered/Not Resolved]
